FAERS Safety Report 10712843 (Version 1)
Quarter: 2015Q1

REPORT INFORMATION
  Report Type: Spontaneous
  Country: US (occurrence: None)
  Receive Date: 20150114
  Receipt Date: 20150114
  Transmission Date: 20150721
  Serious: Yes (Death)
  Sender: FDA-Public Use
  Company Number: None

PATIENT
  Age: 34 Year
  Sex: Female

DRUGS (1)
  1. XOLAIR [Suspect]
     Active Substance: OMALIZUMAB
     Indication: ASTHMA

REACTIONS (4)
  - Metastases to lymph nodes [None]
  - Pulmonary thrombosis [None]
  - Deep vein thrombosis [None]
  - Cervix carcinoma [None]

NARRATIVE: CASE EVENT DATE: 20140812
